FAERS Safety Report 9375619 (Version 2)
Quarter: 2013Q3

REPORT INFORMATION
  Report Type: Report from Study
  Country: NL (occurrence: NL)
  Receive Date: 20130628
  Receipt Date: 20130710
  Transmission Date: 20140515
  Serious: Yes (Hospitalization)
  Sender: FDA-Public Use
  Company Number: NL-ABBOTT-13P-114-1032617-00

PATIENT
  Sex: Male
  Weight: 67 kg

DRUGS (11)
  1. LUPRON DEPOT [Suspect]
     Indication: PROSTATE CANCER
     Route: 058
     Dates: start: 2000
  2. ATENOLOL [Concomitant]
     Indication: HYPERTENSION
     Route: 048
     Dates: end: 201304
  3. CARBASALATE CALCIUM [Concomitant]
     Indication: ANTICOAGULANT THERAPY
     Route: 048
  4. IRBESARTAN [Concomitant]
     Indication: HYPERTENSION
     Route: 048
  5. OMEPRAZOL [Concomitant]
     Indication: GASTROOESOPHAGEAL REFLUX PROPHYLAXIS
     Route: 048
     Dates: start: 201304
  6. OMEPRAZOL [Concomitant]
     Indication: GASTRIC DISORDER
  7. OMEPRAZOL [Concomitant]
     Indication: PROPHYLAXIS
  8. PAROXETINE [Concomitant]
     Indication: DEPRESSION
     Route: 048
     Dates: end: 201304
  9. PAROXETINE [Concomitant]
     Route: 048
     Dates: start: 201304
  10. AMLODIPINE [Concomitant]
     Indication: HYPERTENSION
     Route: 048
     Dates: start: 201304
  11. CALCI CHEW [Concomitant]
     Indication: OSTEOPOROSIS PROPHYLAXIS
     Dosage: 500 MG/800IE
     Route: 048
     Dates: start: 201304

REACTIONS (5)
  - Transient ischaemic attack [Recovered/Resolved]
  - Fall [Recovered/Resolved]
  - Wound [Recovered/Resolved]
  - Fall [Recovered/Resolved]
  - Fall [Recovered/Resolved]
